FAERS Safety Report 7324536-9 (Version None)
Quarter: 2011Q1

REPORT INFORMATION
  Report Type: 
  Country: None (occurrence: None)
  Receive Date: 20110301
  Receipt Date: 20110222
  Transmission Date: 20110831
  Serious: Yes (Hospitalization, Other)
  Sender: FDA-Public Use
  Company Number: BR-PFIZER INC-2011001524

PATIENT
  Age: 66 Year
  Sex: Female
  Weight: 77 kg

DRUGS (7)
  1. LIPITOR [Suspect]
     Dosage: UNK
     Route: 048
     Dates: start: 20100703, end: 20100101
  2. LIPITOR [Suspect]
     Indication: BLOOD CHOLESTEROL INCREASED
     Dosage: 40 MG, 1X/DAY
     Route: 048
     Dates: start: 20080101
  3. UNICARD [Concomitant]
     Indication: CARDIAC DISORDER
     Dosage: UNK
     Dates: start: 20040101
  4. METFORMIN HYDROCHLORIDE/VILDAGLIPTIN [Concomitant]
     Indication: DIABETES MELLITUS
     Dosage: UNK
  5. LEXOTAN [Concomitant]
     Dosage: UNK
     Dates: start: 19960101
  6. STILNOX [Concomitant]
     Dosage: UNK
     Dates: start: 19960101
  7. DIAMICRON [Concomitant]
     Indication: DIABETES MELLITUS
     Dosage: UNK

REACTIONS (3)
  - FAECAL INCONTINENCE [None]
  - DIARRHOEA [None]
  - ULCER [None]
